FAERS Safety Report 19495122 (Version 1)
Quarter: 2021Q3

REPORT INFORMATION
  Report Type: Spontaneous
  Country: FR (occurrence: FR)
  Receive Date: 20210705
  Receipt Date: 20210705
  Transmission Date: 20211014
  Serious: Yes (Other)
  Sender: FDA-Public Use
  Company Number: FR-AUROBINDO-AUR-APL-2021-027976

PATIENT
  Age: 39 Year
  Sex: Female

DRUGS (3)
  1. LETROZOLE ARROW FILM?COATED TABLET 2.5MG [Suspect]
     Active Substance: LETROZOLE
     Indication: HORMONE RECEPTOR POSITIVE BREAST CANCER
     Dosage: 2.5 MILLIGRAM, ONCE A DAY
     Route: 048
     Dates: start: 20201008, end: 20210611
  2. KISQALI [Suspect]
     Active Substance: RIBOCICLIB
     Indication: HORMONE RECEPTOR POSITIVE BREAST CANCER
     Dosage: 600 MILLIGRAM, ONCE A DAY (21 DAYS OUT OF 28)
     Route: 048
     Dates: start: 20201008, end: 20210422
  3. ENANTONE LP [Concomitant]
     Active Substance: LEUPROLIDE ACETATE
     Indication: HORMONE RECEPTOR POSITIVE BREAST CANCER
     Dosage: 3.75 MILLIGRAM (1 MONTH)
     Route: 058
     Dates: start: 20200922

REACTIONS (1)
  - Hepatic cytolysis [Not Recovered/Not Resolved]

NARRATIVE: CASE EVENT DATE: 20210415
